FAERS Safety Report 23917831 (Version 3)
Quarter: 2024Q4

REPORT INFORMATION
  Report Type: Spontaneous
  Country: PL (occurrence: PL)
  Receive Date: 20240530
  Receipt Date: 20241022
  Transmission Date: 20250115
  Serious: Yes (Hospitalization, Other)
  Sender: AUROBINDO
  Company Number: PL-009507513-2405POL002906

PATIENT
  Age: 66 Year
  Sex: Female

DRUGS (10)
  1. CARBOPLATIN [Suspect]
     Active Substance: CARBOPLATIN
     Indication: Squamous cell carcinoma of lung
     Dosage: UNK, AREA UNDER THE CURVE (AUC) OF 5 MG/ML/MIN], Q3W
     Route: 065
     Dates: start: 2021
  2. CARBOPLATIN [Suspect]
     Active Substance: CARBOPLATIN
     Dosage: UNK, AREA UNDER THE CURVE (AUC) OF 5 MG/ML/MIN], Q3W
     Route: 065
     Dates: start: 20210301
  3. PEMBROLIZUMAB [Suspect]
     Active Substance: PEMBROLIZUMAB
     Indication: Squamous cell carcinoma of lung
     Dosage: 400 MILLIGRAM, EVERY 6 WEEKS
     Route: 042
     Dates: start: 2021
  4. PEMBROLIZUMAB [Suspect]
     Active Substance: PEMBROLIZUMAB
     Dosage: 200 MILLIGRAM, EVERY 3 WEEK
     Route: 042
     Dates: start: 20210301
  5. PACLITAXEL [Suspect]
     Active Substance: PACLITAXEL
     Indication: Squamous cell carcinoma of lung
     Dosage: 175 MILLIGRAM/SQ. METER, EVERY 3 WEEK
     Route: 042
     Dates: start: 2021
  6. PACLITAXEL [Suspect]
     Active Substance: PACLITAXEL
     Dosage: 200 MILLIGRAM/SQ. METER, EVERY 3 WEEK
     Route: 042
     Dates: start: 20210303
  7. BISOPROLOL [Concomitant]
     Active Substance: BISOPROLOL\BISOPROLOL FUMARATE
     Indication: Product used for unknown indication
     Dosage: UNK
     Route: 065
  8. GLIMEPIRIDE [Concomitant]
     Active Substance: GLIMEPIRIDE
     Indication: Product used for unknown indication
     Dosage: UNK
     Route: 065
  9. HYDROCHLOROTHIAZIDE\VALSARTAN [Concomitant]
     Active Substance: HYDROCHLOROTHIAZIDE\VALSARTAN
     Indication: Product used for unknown indication
     Dosage: UNK, 25 MG (+) 160 MG
     Route: 065
  10. METFORMIN [Concomitant]
     Active Substance: METFORMIN HYDROCHLORIDE
     Indication: Product used for unknown indication
     Dosage: UNK
     Route: 065

REACTIONS (16)
  - Pneumonia haemophilus [Recovering/Resolving]
  - Acute respiratory failure [Recovering/Resolving]
  - Hypothyroidism [Recovering/Resolving]
  - Bronchiectasis [Unknown]
  - Spinal compression fracture [Unknown]
  - Haemangioma of bone [Unknown]
  - Bronchitis bacterial [Unknown]
  - Bone metabolism disorder [Unknown]
  - Rib fracture [Unknown]
  - Pulmonary hilar enlargement [Unknown]
  - Anaemia [Unknown]
  - Musculoskeletal disorder [Unknown]
  - Thyroiditis [Recovering/Resolving]
  - Spinal pain [Unknown]
  - Pain [Unknown]
  - Therapy partial responder [Unknown]

NARRATIVE: CASE EVENT DATE: 20210101
